FAERS Safety Report 14496811 (Version 1)
Quarter: 2018Q1

REPORT INFORMATION
  Report Type: Spontaneous
  Country: US (occurrence: US)
  Receive Date: 20180207
  Receipt Date: 20180207
  Transmission Date: 20180509
  Serious: No
  Sender: FDA-Public Use
  Company Number: US-PFIZER INC-2018050902

PATIENT
  Sex: Female

DRUGS (2)
  1. IBUPROFEN. [Suspect]
     Active Substance: IBUPROFEN
     Indication: MYALGIA
     Dosage: UNK
  2. ASPIRIN. [Suspect]
     Active Substance: ASPIRIN
     Indication: HEADACHE
     Dosage: UNK

REACTIONS (1)
  - Abdominal discomfort [Unknown]
